FAERS Safety Report 9226890 (Version 1)
Quarter: 2013Q1

REPORT INFORMATION
  Report Type: Spontaneous
  Country: US (occurrence: None)
  Receive Date: 20120912
  Receipt Date: 20120912
  Transmission Date: 20140127
  Serious: No
  Sender: FDA-Public Use
  Company Number: 2012SP027842

PATIENT
  Age: 50 Year
  Sex: Male

DRUGS (8)
  1. VICTRELIS 200 MG [Suspect]
     Indication: HEPATITIS C
     Route: 048
     Dates: start: 20120207, end: 20120517
  2. PEGASYS [Suspect]
  3. RIBASPHERE [Suspect]
  4. FENTANYL [Concomitant]
  5. TEMAZEPAM [Concomitant]
  6. OMEPRAZOLE [Concomitant]
  7. OXYCODONE [Concomitant]
  8. ENDOCET [Concomitant]

REACTIONS (2)
  - Oral pain [None]
  - Rash generalised [None]
